FAERS Safety Report 10363249 (Version 1)
Quarter: 2014Q1

REPORT INFORMATION
  Report Type: Spontaneous
  Country: US (occurrence: None)
  Receive Date: 20140306
  Receipt Date: 20140306
  Transmission Date: 20141002
  Serious: Yes (Other)
  Sender: FDA-Public Use
  Company Number: 163-21880-13061676

PATIENT
  Age: 83 Year
  Sex: Male

DRUGS (11)
  1. REVLIMID [Suspect]
     Indication: MYELODYSPLASTIC SYNDROME
     Route: 048
     Dates: start: 20130424
  2. LEVAQUIN (LEVOFLOXACIN) (TABLETS) [Concomitant]
  3. MUCINEX DM ER (TUSSIN DM) (TABLETS) [Concomitant]
  4. LASIX (FUROSEMIDE) (TABLETS) [Concomitant]
  5. LIPITOR (ATORVASTATIN) (TABLETS) [Concomitant]
  6. CARVEDILOL (CARVEDILOL) (TABLETS) [Concomitant]
  7. FLOVENT DISKUS (FLUTICASONE PROPIONATE) (UNKNOWN) [Concomitant]
  8. ALBUTEROL (SALBUTAMOL) (SOLUTION) [Concomitant]
  9. SPIRIVA HANDIHALER (TIOTROPIUM BROMIDE) (UNKNOWN) [Concomitant]
  10. CALCITONIN SALMON (CALCITONIN, SALMON) (UNKNOWN) [Concomitant]
  11. ASPIRIN (ACETYLSALICYLIC ACID) (CHEWABLE TABLET) [Concomitant]

REACTIONS (2)
  - Haemoglobin decreased [None]
  - Haematocrit decreased [None]
